FAERS Safety Report 6164836-1 (Version None)
Quarter: 2009Q2

REPORT INFORMATION
  Report Type: 
  Country: None (occurrence: None)
  Receive Date: 20090423
  Receipt Date: 20090415
  Transmission Date: 20091009
  Serious: Yes (Other)
  Sender: FDA-Public Use
  Company Number: PHEH2009US03676

PATIENT
  Age: 38 Year
  Sex: Female

DRUGS (1)
  1. TEGRETOL-XR [Suspect]
     Indication: COMPLEX PARTIAL SEIZURES
     Dosage: 200 MG, BID
     Route: 048
     Dates: start: 20060101

REACTIONS (1)
  - CATARACT [None]
